FAERS Safety Report 9657397 (Version 1)
Quarter: 2013Q4

REPORT INFORMATION
  Report Type: Report from Study
  Country: NL (occurrence: NL)
  Receive Date: 20131030
  Receipt Date: 20131030
  Transmission Date: 20140711
  Serious: Yes (Other)
  Sender: FDA-Public Use
  Company Number: NL-PFIZER INC-2013303024

PATIENT
  Age: 78 Year
  Sex: Female

DRUGS (5)
  1. CITALOPRAM HBR [Suspect]
     Dosage: 20 MG, DAILY
  2. AMLODIPINE BESILATE [Suspect]
     Dosage: UNK
  3. ALPRAZOLAM [Suspect]
     Dosage: UNK
  4. ENALAPRIL [Suspect]
     Dosage: UNK
  5. SOTALOL [Suspect]
     Dosage: UNK

REACTIONS (1)
  - Hyponatraemia [Unknown]
